FAERS Safety Report 24878031 (Version 1)
Quarter: 2025Q1

REPORT INFORMATION
  Report Type: Spontaneous
  Country: US (occurrence: US)
  Receive Date: 20250123
  Receipt Date: 20250123
  Transmission Date: 20250409
  Serious: Yes (Other)
  Sender: PERRIGO
  Company Number: US-PERRIGO-25US000808

PATIENT
  Sex: Female

DRUGS (1)
  1. OPILL [Suspect]
     Active Substance: NORGESTREL
     Indication: Product used for unknown indication
     Route: 048

REACTIONS (3)
  - Abortion spontaneous [Unknown]
  - Pregnancy on oral contraceptive [Unknown]
  - Drug ineffective [Unknown]
